FAERS Safety Report 17959171 (Version 1)
Quarter: 2020Q2

REPORT INFORMATION
  Report Type: Spontaneous
  Country: BR (occurrence: BR)
  Receive Date: 20200629
  Receipt Date: 20200629
  Transmission Date: 20200714
  Serious: Yes (Other)
  Sender: FDA-Public Use
  Company Number: BR-GLAXOSMITHKLINE-BR2019AMR215718

PATIENT
  Sex: Female

DRUGS (1)
  1. BENLYSTA [Suspect]
     Active Substance: BELIMUMAB
     Indication: SYSTEMIC LUPUS ERYTHEMATOSUS
     Dosage: UNK
     Dates: start: 20191031

REACTIONS (10)
  - Pharyngitis [Unknown]
  - Social problem [Unknown]
  - Sinusitis [Unknown]
  - Symptom recurrence [Unknown]
  - Urinary tract infection [Recovered/Resolved]
  - Product availability issue [Unknown]
  - Arthralgia [Unknown]
  - Respiratory tract infection [Recovered/Resolved]
  - Inappropriate schedule of product administration [Unknown]
  - Systemic lupus erythematosus [Unknown]
